FAERS Safety Report 9508859 (Version 1)
Quarter: 2013Q3

REPORT INFORMATION
  Report Type: Spontaneous
  Country: US (occurrence: US)
  Receive Date: 20130909
  Receipt Date: 20130909
  Transmission Date: 20140515
  Serious: No
  Sender: FDA-Public Use
  Company Number: US-BRISTOL-MYERS SQUIBB COMPANY-17398272

PATIENT
  Age: 15 Year
  Sex: Male

DRUGS (3)
  1. ABILIFY [Suspect]
     Indication: DEPRESSION
     Dates: start: 20091026
  2. BUPROPION [Concomitant]
  3. METHYLPHENIDATE [Concomitant]

REACTIONS (1)
  - Blood creatinine increased [Unknown]
